FAERS Safety Report 13551029 (Version 2)
Quarter: 2017Q2

REPORT INFORMATION
  Report Type: Spontaneous
  Country: US (occurrence: US)
  Receive Date: 20170516
  Receipt Date: 20170519
  Transmission Date: 20170830
  Serious: Yes (Life-Threatening, Other)
  Sender: FDA-Public Use
  Company Number: US-PFIZER INC-2017215149

PATIENT
  Age: 28 Year
  Sex: Male

DRUGS (12)
  1. HYDROXYZINE PAMOATE. [Interacting]
     Active Substance: HYDROXYZINE PAMOATE
     Indication: MAJOR DEPRESSION
     Dosage: 20 MG, DAILY (NIGHTLY REGIMEN)
  2. FLUOXETINE [Interacting]
     Active Substance: FLUOXETINE HYDROCHLORIDE
     Indication: POST-TRAUMATIC STRESS DISORDER
  3. PROPRANOLOL [Concomitant]
     Active Substance: PROPRANOLOL HYDROCHLORIDE
     Indication: ANXIETY
     Dosage: 10 MG, AS NEEDED
  4. ZOLPIDEM [Interacting]
     Active Substance: ZOLPIDEM\ZOLPIDEM TARTRATE
     Indication: INSOMNIA
     Dosage: 10 MG, DAILY (NIGHTLY REGIMEN)
  5. GABAPENTIN. [Interacting]
     Active Substance: GABAPENTIN
     Indication: IRRITABILITY
  6. PROPRANOLOL ER [Concomitant]
     Indication: ANXIETY
     Dosage: 60 MG, DAILY
  7. PRAZOSIN. [Concomitant]
     Active Substance: PRAZOSIN
     Indication: NIGHTMARE
     Dosage: 2 MG, DAILY
  8. GABAPENTIN. [Suspect]
     Active Substance: GABAPENTIN
     Indication: ANXIETY
     Dosage: 300 MG, 3X/DAY
  9. TRAMADOL. [Interacting]
     Active Substance: TRAMADOL
     Indication: ARTHRALGIA
     Dosage: 400 MG, DAILY
  10. FLUOXETINE [Interacting]
     Active Substance: FLUOXETINE HYDROCHLORIDE
     Indication: DEPRESSION
     Dosage: 60 MG, DAILY
  11. MELATONIN [Interacting]
     Active Substance: MELATONIN
     Dosage: 6 MG, DAILY (NIGHTLY REGIMEN)
  12. PRAZOSIN. [Concomitant]
     Active Substance: PRAZOSIN
     Dosage: 4 MG, DAILY

REACTIONS (4)
  - Parasomnia [Recovered/Resolved]
  - Drug interaction [Recovered/Resolved]
  - Product use in unapproved indication [Unknown]
  - Suicidal behaviour [Recovered/Resolved]
